FAERS Safety Report 6983969-0 (Version None)
Quarter: 2010Q3

REPORT INFORMATION
  Report Type: 
  Country: None (occurrence: None)
  Receive Date: 20100915
  Receipt Date: 20090406
  Transmission Date: 20110219
  Serious: No
  Sender: FDA-Public Use
  Company Number: US-WYE-H08848209

PATIENT
  Age: 23 Year
  Sex: Male
  Weight: 73.55 kg

DRUGS (4)
  1. ADVIL PM [Suspect]
     Indication: ANALGESIC THERAPY
     Dosage: 2 CAPLETS DAILY AT BED TIME
     Route: 048
     Dates: start: 20090301, end: 20090405
  2. ADVIL PM [Suspect]
     Indication: INSOMNIA
  3. IBUPROFEN [Concomitant]
  4. PROZAC [Concomitant]

REACTIONS (1)
  - MIGRAINE [None]
